FAERS Safety Report 15319118 (Version 2)
Quarter: 2018Q4

REPORT INFORMATION
  Report Type: Report from Study
  Country: US (occurrence: US)
  Receive Date: 20180826
  Receipt Date: 20181025
  Transmission Date: 20190204
  Serious: Yes (Hospitalization)
  Sender: FDA-Public Use
  Company Number: US-ACTELION-A-NJ2017-157948

PATIENT
  Age: 72 Year
  Sex: Male
  Weight: 115.19 kg

DRUGS (5)
  1. REVATIO [Concomitant]
     Active Substance: SILDENAFIL CITRATE
  2. OPSUMIT [Suspect]
     Active Substance: MACITENTAN
     Indication: PULMONARY ARTERIAL HYPERTENSION
     Dosage: 10 MG, QD
     Route: 048
  3. AMLODIPINE [Concomitant]
     Active Substance: AMLODIPINE BESYLATE
  4. REMODULIN [Concomitant]
     Active Substance: TREPROSTINIL
  5. OXYGEN. [Concomitant]
     Active Substance: OXYGEN

REACTIONS (9)
  - Hospitalisation [Recovered/Resolved]
  - Peripheral swelling [Unknown]
  - Infusion site pain [Unknown]
  - Dyspnoea exertional [Unknown]
  - Confusional state [Unknown]
  - Malaise [Unknown]
  - Chest pain [Unknown]
  - Visual impairment [Unknown]
  - Dyspnoea [Unknown]
